FAERS Safety Report 25025605 (Version 1)
Quarter: 2025Q1

REPORT INFORMATION
  Report Type: Spontaneous
  Country: JP (occurrence: JP)
  Receive Date: 20250228
  Receipt Date: 20250228
  Transmission Date: 20250409
  Serious: Yes (Hospitalization, Other)
  Sender: SUNOVION
  Company Number: JP-SMPA-2025SMP001450

PATIENT

DRUGS (2)
  1. LATUDA [Suspect]
     Active Substance: LURASIDONE HYDROCHLORIDE
     Route: 064
  2. LAMOTRIGINE [Concomitant]
     Active Substance: LAMOTRIGINE
     Route: 064

REACTIONS (2)
  - Neonatal asphyxia [Recovered/Resolved]
  - Foetal exposure during pregnancy [Unknown]
